FAERS Safety Report 10492374 (Version 1)
Quarter: 2014Q4

REPORT INFORMATION
  Report Type: Spontaneous
  Country: US (occurrence: US)
  Receive Date: 20141002
  Receipt Date: 20141002
  Transmission Date: 20150528
  Serious: No
  Sender: FDA-Public Use
  Company Number: US-GLAXOSMITHKLINE-A1070131A

PATIENT
  Age: 68 Year
  Sex: Female

DRUGS (3)
  1. ALLEGRA [Concomitant]
     Active Substance: FEXOFENADINE HYDROCHLORIDE
  2. ADVAIR HFA [Suspect]
     Active Substance: FLUTICASONE PROPIONATE\SALMETEROL XINAFOATE
     Indication: ASTHMA
     Dosage: 1PUFF TWICE PER DAY
     Dates: start: 2009
  3. XANAX [Concomitant]
     Active Substance: ALPRAZOLAM

REACTIONS (10)
  - Cough [Not Recovered/Not Resolved]
  - Overdose [Unknown]
  - Influenza [Unknown]
  - Headache [Not Recovered/Not Resolved]
  - Burning sensation [Not Recovered/Not Resolved]
  - Speech disorder [Not Recovered/Not Resolved]
  - Product quality issue [Unknown]
  - Pulmonary pain [Not Recovered/Not Resolved]
  - Oropharyngeal pain [Not Recovered/Not Resolved]
  - Disorientation [Not Recovered/Not Resolved]

NARRATIVE: CASE EVENT DATE: 20140417
